FAERS Safety Report 11661012 (Version 1)
Quarter: 2015Q4

REPORT INFORMATION
  Report Type: Spontaneous
  Country: TW (occurrence: TW)
  Receive Date: 20151026
  Receipt Date: 20151026
  Transmission Date: 20160304
  Serious: Yes (Death, Hospitalization)
  Sender: FDA-Public Use
  Company Number: TW-PFIZER INC-2015351089

PATIENT
  Age: 40 Year
  Sex: Male

DRUGS (3)
  1. AXITINIB [Suspect]
     Active Substance: AXITINIB
     Dosage: 8 MG, BID
  2. AXITINIB [Suspect]
     Active Substance: AXITINIB
     Indication: RENAL CANCER METASTATIC
     Dosage: 5 MG, BID
     Dates: start: 201303
  3. AXITINIB [Suspect]
     Active Substance: AXITINIB
     Dosage: 7 MG, BID

REACTIONS (6)
  - Disease progression [Fatal]
  - Septic shock [Recovered/Resolved]
  - Respiratory failure [Fatal]
  - Spinal cord compression [Unknown]
  - Renal cancer metastatic [Fatal]
  - Renal failure [Recovered/Resolved]
